FAERS Safety Report 6299097-6 (Version None)
Quarter: 2009Q3

REPORT INFORMATION
  Report Type: 
  Country: None (occurrence: None)
  Receive Date: 20090806
  Receipt Date: 20090724
  Transmission Date: 20100115
  Serious: Yes (Hospitalization)
  Sender: FDA-Public Use
  Company Number: KE-BRISTOL-MYERS SQUIBB COMPANY-14728299

PATIENT
  Age: 25 Year
  Sex: Male

DRUGS (5)
  1. EFAVIRENZ [Suspect]
     Indication: HIV INFECTION
     Route: 048
     Dates: start: 20090623, end: 20090701
  2. TRUVADA [Suspect]
     Indication: HIV INFECTION
     Route: 048
     Dates: start: 20090623, end: 20090701
  3. RIFINAH [Concomitant]
  4. FANSIDAR [Concomitant]
  5. SEPTRIN [Concomitant]

REACTIONS (1)
  - EPISTAXIS [None]
